FAERS Safety Report 9992346 (Version 3)
Quarter: 2014Q2

REPORT INFORMATION
  Report Type: Spontaneous
  Country: US (occurrence: US)
  Receive Date: 20140310
  Receipt Date: 20140528
  Transmission Date: 20141212
  Serious: Yes (Hospitalization)
  Sender: FDA-Public Use
  Company Number: US-GLAXOSMITHKLINE-A1062889A

PATIENT
  Age: 64 Year
  Sex: Male

DRUGS (7)
  1. VENTOLIN [Suspect]
     Indication: ASTHMA
     Dosage: 2PUFF AS REQUIRED
     Route: 055
     Dates: start: 20110117
  2. ALLOPURINOL [Concomitant]
  3. WARFARIN [Concomitant]
  4. FUROSEMIDE [Concomitant]
  5. POTASSIUM [Concomitant]
  6. DIGOXIN [Concomitant]
  7. LOVASTATIN [Concomitant]

REACTIONS (13)
  - Pulmonary congestion [Not Recovered/Not Resolved]
  - Cough [Not Recovered/Not Resolved]
  - Aortic valve replacement [Unknown]
  - Sepsis [Unknown]
  - Weight decreased [Not Recovered/Not Resolved]
  - Traumatic lung injury [Unknown]
  - Lung infection [Unknown]
  - Soft tissue injury [Unknown]
  - Catheter site infection [Unknown]
  - Purulent discharge [Unknown]
  - Delirium [Unknown]
  - Condition aggravated [Unknown]
  - Thoracostomy [Unknown]
